FAERS Safety Report 8555138-4 (Version None)
Quarter: 2012Q3

REPORT INFORMATION
  Report Type: 
  Country: None (occurrence: None)
  Receive Date: 20120731
  Receipt Date: 20120726
  Transmission Date: 20120928
  Serious: Yes (Life-Threatening, Hospitalization, Other)
  Sender: FDA-Public Use
  Company Number: FR-PFIZER INC-2012050441

PATIENT
  Age: 47 Year
  Sex: Female

DRUGS (2)
  1. IBUPROFEN + PSEUDOEPHEDRINE HCL [Suspect]
     Indication: NASOPHARYNGITIS
  2. IBUPROFEN + PSEUDOEPHEDRINE HCL [Suspect]
     Indication: HEADACHE
     Dosage: UNK
     Route: 048
     Dates: start: 20120115, end: 20120118

REACTIONS (3)
  - SHOCK HAEMORRHAGIC [None]
  - HAEMATEMESIS [None]
  - ANAEMIA [None]
